FAERS Safety Report 4339986-2 (Version None)
Quarter: 2004Q2

REPORT INFORMATION
  Report Type: 
  Country: None (occurrence: None)
  Receive Date: 20040416
  Receipt Date: 20040409
  Transmission Date: 20050107
  Serious: Yes (Other)
  Sender: FDA-Public Use
  Company Number: PHEH2004US04059

PATIENT
  Age: 78 Year
  Sex: Female

DRUGS (3)
  1. LAMISIL [Suspect]
     Indication: NAIL TINEA
     Dosage: 250 MG, QD
     Route: 048
     Dates: start: 20030101, end: 20030101
  2. LIPITOR [Concomitant]
  3. ANTIHYPERTENSIVES [Concomitant]

REACTIONS (6)
  - PRURITUS [None]
  - PSORIASIS [None]
  - RASH SCALY [None]
  - SCAB [None]
  - SKIN BLEEDING [None]
  - SKIN LESION [None]
